FAERS Safety Report 8817076 (Version 1)
Quarter: 2012Q4

REPORT INFORMATION
  Report Type: Spontaneous
  Country: US (occurrence: None)
  Receive Date: 20121003
  Receipt Date: 20121003
  Transmission Date: 20130627
  Serious: Yes (Other)
  Sender: FDA-Public Use
  Company Number: None

PATIENT
  Age: 29 Year
  Sex: Female
  Weight: 58.51 kg

DRUGS (1)
  1. PARAGARD T 380 [Suspect]
     Indication: CONTRACEPTION
     Dates: start: 20030318, end: 20120711

REACTIONS (1)
  - Human chorionic gonadotropin positive [None]
